FAERS Safety Report 17932894 (Version 2)
Quarter: 2020Q2

REPORT INFORMATION
  Report Type: Spontaneous
  Country: FI (occurrence: FI)
  Receive Date: 20200623
  Receipt Date: 20200624
  Transmission Date: 20200714
  Serious: Yes (Life-Threatening)
  Sender: FDA-Public Use
  Company Number: FI-PFIZER INC-2020240560

PATIENT
  Age: 17 Year
  Sex: Male

DRUGS (4)
  1. METHOTREXATE SODIUM. [Suspect]
     Active Substance: METHOTREXATE SODIUM
     Indication: OSTEOSARCOMA
     Dosage: UNK
     Route: 042
     Dates: start: 2019, end: 20200512
  2. CARDACE [Concomitant]
     Indication: CARDIOVASCULAR EVENT PROPHYLAXIS
     Dosage: 2.5 MG, DAILY
     Route: 048
     Dates: start: 20191007, end: 20200512
  3. APURIN SANDOZ [Concomitant]
     Active Substance: ALLOPURINOL
     Indication: RENAL DISORDER PROPHYLAXIS
     Dosage: 100 MG, DAILY
     Route: 048
     Dates: start: 20200511, end: 20200512
  4. DEXAMETASON ABCUR [Concomitant]
     Indication: PROPHYLAXIS OF NAUSEA AND VOMITING
     Dosage: 10 MG, DAILY
     Route: 048
     Dates: start: 20200511, end: 20200513

REACTIONS (3)
  - Hepatic failure [Recovered/Resolved with Sequelae]
  - Drug level increased [Recovered/Resolved with Sequelae]
  - Renal failure [Recovered/Resolved with Sequelae]

NARRATIVE: CASE EVENT DATE: 20200512
